FAERS Safety Report 23944524 (Version 1)
Quarter: 2024Q2

REPORT INFORMATION
  Report Type: 
  Country: JP (occurrence: JP)
  Receive Date: 20240606
  Receipt Date: 20240606
  Transmission Date: 20240716
  Serious: Yes (Other)
  Sender: FDA-Public Use
  Company Number: JP-JNJFOC-20240612711

PATIENT
  Age: 55 Year
  Sex: Male

DRUGS (7)
  1. INVEGA [Suspect]
     Active Substance: PALIPERIDONE
     Indication: Schizophrenia
     Route: 048
     Dates: start: 20110310, end: 202405
  2. INVEGA [Suspect]
     Active Substance: PALIPERIDONE
     Route: 048
     Dates: start: 202405
  3. LEVOMEPROMAZINE [Concomitant]
     Active Substance: LEVOMEPROMAZINE
     Route: 048
     Dates: start: 20231207
  4. FLUNITRAZEPAM [Concomitant]
     Active Substance: FLUNITRAZEPAM
     Dosage: DOSE UNKNOWN
     Route: 048
     Dates: start: 20160613
  5. BROTIZOLAM [Concomitant]
     Active Substance: BROTIZOLAM
     Dosage: DOSE UNKNOWN
     Route: 048
     Dates: start: 20130307
  6. ATORVASTATIN [Concomitant]
     Active Substance: ATORVASTATIN
     Dosage: DOSE UNKNOWN
     Route: 048
     Dates: start: 20181003
  7. FEBUXOSTAT [Concomitant]
     Active Substance: FEBUXOSTAT
     Dosage: DOSE UNKNOWN
     Route: 048
     Dates: start: 20220721

REACTIONS (3)
  - Renal impairment [Unknown]
  - Atrioventricular block [Unknown]
  - Off label use [Unknown]

NARRATIVE: CASE EVENT DATE: 20240502
